FAERS Safety Report 8375239-3 (Version None)
Quarter: 2012Q2

REPORT INFORMATION
  Report Type: 
  Country: None (occurrence: None)
  Receive Date: 20120522
  Receipt Date: 20120508
  Transmission Date: 20120825
  Serious: Yes (Other)
  Sender: FDA-Public Use
  Company Number: GB-RANBAXY-2012R1-56304

PATIENT
  Age: 63 Year
  Sex: Male

DRUGS (2)
  1. CETIRIZINE [Suspect]
     Indication: PRURITUS
     Route: 065
  2. CETIRIZINE [Suspect]
     Indication: URTICARIA PIGMENTOSA

REACTIONS (1)
  - TUBULOINTERSTITIAL NEPHRITIS [None]
